FAERS Safety Report 9250591 (Version 1)
Quarter: 2013Q1

REPORT INFORMATION
  Report Type: Spontaneous
  Country: US (occurrence: None)
  Receive Date: 20130305
  Receipt Date: 20130305
  Transmission Date: 20140127
  Serious: Yes (Hospitalization)
  Sender: FDA-Public Use
  Company Number: 163-21880-12063197

PATIENT
  Age: 73 Year
  Sex: Female

DRUGS (8)
  1. REVLIMID (LENALIDOMIDE) (CAPSULES) [Suspect]
     Indication: PLASMA CELL MYELOMA
     Dosage: 10MG, 14 IN 21 D, PO
     Route: 048
     Dates: start: 20110403, end: 20120608
  2. CALCIUM 600 [Concomitant]
  3. MAGNESIUM (MAGNESIUM) [Concomitant]
  4. VITAMINS [Concomitant]
  5. OMEPRAZOLE (OMEPRAZOLE) [Concomitant]
  6. POTASSIUM CHLORIDE (POTASSIUM CHLORIDE) [Concomitant]
  7. CHLORIDE (CHLORIDE) [Concomitant]
  8. VELCADE (BORTEZOMIB) [Suspect]
     Indication: PRODUCT USED FOR UNKNOWN INDICATION
     Route: 042
     Dates: start: 20120516

REACTIONS (1)
  - Cardiac failure congestive [None]
